FAERS Safety Report 19467257 (Version 1)
Quarter: 2021Q2

REPORT INFORMATION
  Report Type: Report from Study
  Country: FR (occurrence: FR)
  Receive Date: 20210628
  Receipt Date: 20210628
  Transmission Date: 20210717
  Serious: Yes (Hospitalization)
  Sender: FDA-Public Use
  Company Number: FR-ROCHE-2838974

PATIENT
  Age: 70 Year
  Sex: Female
  Weight: 76 kg

DRUGS (3)
  1. BLINDED ATEZOLIZUMAB [Suspect]
     Active Substance: ATEZOLIZUMAB
     Indication: OVARIAN CANCER
     Dosage: DTE OF LAST DOSE OF ATEZOLIZUMAB PRIOR TO SAE: 05/MAY/2021, 09/MAY/2021, 12/MAY/2021
     Route: 042
     Dates: start: 20210428
  2. ELIQUIS [Concomitant]
     Active Substance: APIXABAN
     Route: 048
     Dates: start: 201812
  3. BEVACIZUMAB. [Suspect]
     Active Substance: BEVACIZUMAB
     Indication: OVARIAN CANCER
     Dosage: DATE OF LAST DOSE OF BEVACIZUMAB PRIOR TO SAE: 12/MAY2021, 28/MAY/2021, BEVACIZUMAB (760 MG)
     Route: 042
     Dates: start: 20210505, end: 20210609

REACTIONS (3)
  - Asthenia [Not Recovered/Not Resolved]
  - Hypophysitis [Not Recovered/Not Resolved]
  - Omphalorrhexis [Recovering/Resolving]

NARRATIVE: CASE EVENT DATE: 20210525
